FAERS Safety Report 9272793 (Version 1)
Quarter: 2013Q2

REPORT INFORMATION
  Report Type: Spontaneous
  Country: US (occurrence: US)
  Receive Date: 20130506
  Receipt Date: 20130506
  Transmission Date: 20140414
  Serious: No
  Sender: FDA-Public Use
  Company Number: US-ASTRAZENECA-2012SE24724

PATIENT
  Age: 63 Year
  Sex: Female

DRUGS (2)
  1. PRILOSEC OTC [Suspect]
     Dosage: 1 TABLET, 1 /DAY FOR 4 DAYS
     Route: 048
     Dates: start: 20120409, end: 20120412
  2. COUMADIN /00014802/ [Concomitant]
     Dosage: UNKNOWN

REACTIONS (3)
  - Feeling jittery [Recovered/Resolved]
  - Nervousness [Recovered/Resolved]
  - Nausea [Recovered/Resolved]
